FAERS Safety Report 9181776 (Version 1)
Quarter: 2013Q1

REPORT INFORMATION
  Report Type: Spontaneous
  Country: US (occurrence: None)
  Receive Date: 20130321
  Receipt Date: 20130321
  Transmission Date: 20140127
  Serious: Yes (Hospitalization)
  Sender: FDA-Public Use
  Company Number: None

PATIENT
  Sex: Male
  Weight: 48.6 kg

DRUGS (3)
  1. CYTARABINE [Suspect]
  2. ETOPOSIDE (VP-16) [Suspect]
  3. METHOTREXATE [Suspect]

REACTIONS (6)
  - Pyrexia [None]
  - Neutropenia [None]
  - Proctalgia [None]
  - Blood culture positive [None]
  - Streptococcal infection [None]
  - Mucosal inflammation [None]
